FAERS Safety Report 8893080 (Version 1)
Quarter: 2012Q4

REPORT INFORMATION
  Report Type: Spontaneous
  Country: US (occurrence: None)
  Receive Date: 20121106
  Receipt Date: 20121106
  Transmission Date: 20130627
  Serious: Yes (Life-Threatening, Disabling)
  Sender: FDA-Public Use
  Company Number: None

PATIENT
  Age: 25 Year
  Sex: Female
  Weight: 49.9 kg

DRUGS (1)
  1. TRILEPTAL [Suspect]
     Indication: BIPOLAR DISORDER
     Dates: start: 20030709, end: 20060202

REACTIONS (11)
  - Hypersomnia [None]
  - Fall [None]
  - Blepharospasm [None]
  - Contusion [None]
  - Lymphoid tissue hyperplasia [None]
  - Renal haemorrhage [None]
  - Bone marrow failure [None]
  - Nephritis [None]
  - Spinal osteoarthritis [None]
  - Vitamin D deficiency [None]
  - Bradycardia [None]
